FAERS Safety Report 10382929 (Version 6)
Quarter: 2021Q3

REPORT INFORMATION
  Report Type: Spontaneous
  Country: US (occurrence: US)
  Receive Date: 20140813
  Receipt Date: 20210924
  Transmission Date: 20211014
  Serious: No
  Sender: FDA-Public Use
  Company Number: US-SA-2014SA040174

PATIENT
  Age: 31 Year
  Sex: Male
  Weight: 67.13 kg

DRUGS (13)
  1. PREDNISONE. [Concomitant]
     Active Substance: PREDNISONE
     Indication: PREMEDICATION
     Dosage: 30 MG,UNK
     Route: 048
     Dates: start: 20140325, end: 20140325
  2. SYMBICORT [Concomitant]
     Active Substance: BUDESONIDE\FORMOTEROL FUMARATE DIHYDRATE
  3. IBUPROFEN. [Concomitant]
     Active Substance: IBUPROFEN
     Indication: PREMEDICATION
     Dosage: UNK
     Route: 048
     Dates: start: 20140325, end: 20140325
  4. NORMAL SALINE [Concomitant]
     Active Substance: SODIUM CHLORIDE
  5. ASPIRIN [ACETYLSALICYLIC ACID] [Concomitant]
     Active Substance: ASPIRIN
  6. FABRAZYME [Suspect]
     Active Substance: AGALSIDASE BETA
     Indication: FABRY^S DISEASE
     Dosage: 70 MG, QOW
     Route: 041
     Dates: start: 20090211
  7. SODIUM CHLORIDE. [Concomitant]
     Active Substance: SODIUM CHLORIDE
  8. ENBREL [Concomitant]
     Active Substance: ETANERCEPT
  9. STERILE WATER [Concomitant]
     Active Substance: WATER
  10. SOLU?MEDROL [Concomitant]
     Active Substance: METHYLPREDNISOLONE SODIUM SUCCINATE
  11. EPINEPHRINE. [Concomitant]
     Active Substance: EPINEPHRINE
  12. TYLENOL [Concomitant]
     Active Substance: ACETAMINOPHEN
  13. HYDROXYZINE [Concomitant]
     Active Substance: HYDROXYZINE HYDROCHLORIDE
     Indication: PREMEDICATION
     Dosage: 50 MG,1X
     Route: 048
     Dates: start: 20140325, end: 20140325

REACTIONS (9)
  - COVID-19 [Recovered/Resolved]
  - Nasopharyngitis [Unknown]
  - Body temperature increased [Unknown]
  - Product dose omission issue [Unknown]
  - Nasal congestion [Unknown]
  - Cough [Unknown]
  - SARS-CoV-2 test positive [Recovered/Resolved]
  - Incorrect dose administered [Unknown]
  - Oropharyngeal pain [Unknown]

NARRATIVE: CASE EVENT DATE: 20140325
